FAERS Safety Report 9353662 (Version 1)
Quarter: 2013Q2

REPORT INFORMATION
  Report Type: Spontaneous
  Country: US (occurrence: None)
  Receive Date: 20130617
  Receipt Date: 20130617
  Transmission Date: 20140414
  Serious: Yes (Other)
  Sender: FDA-Public Use
  Company Number: None

PATIENT
  Age: 60 Year
  Sex: 0
  Weight: 99.79 kg

DRUGS (1)
  1. PREDNISONE [Suspect]
     Dosage: 4 PILLS A DAY
     Route: 048
     Dates: start: 20130501, end: 20130612

REACTIONS (3)
  - Skin exfoliation [None]
  - Pain in extremity [None]
  - Product substitution issue [None]
